FAERS Safety Report 21730326 (Version 1)
Quarter: 2022Q4

REPORT INFORMATION
  Report Type: Spontaneous
  Country: US (occurrence: US)
  Receive Date: 20221214
  Receipt Date: 20221214
  Transmission Date: 20230113
  Serious: No
  Sender: FDA-Public Use
  Company Number: US-SA-SAC20221213000443

PATIENT
  Age: 21 Year
  Sex: Female

DRUGS (5)
  1. DUPIXENT [Suspect]
     Active Substance: DUPILUMAB
     Indication: Dermatitis atopic
     Dosage: 1 DF, QOW
     Route: 058
  2. KYLEENA [Concomitant]
     Active Substance: LEVONORGESTREL
  3. TACROLIMUS [Concomitant]
     Active Substance: TACROLIMUS
  4. SUMATRIPTAN [Concomitant]
     Active Substance: SUMATRIPTAN
  5. TRETINOIN [Concomitant]
     Active Substance: TRETINOIN

REACTIONS (1)
  - Rebound atopic dermatitis [Unknown]
